FAERS Safety Report 5831397-3 (Version None)
Quarter: 2008Q3

REPORT INFORMATION
  Report Type: 
  Country: None (occurrence: None)
  Receive Date: 20080801
  Receipt Date: 20080721
  Transmission Date: 20090109
  Serious: Yes (Other)
  Sender: FDA-Public Use
  Company Number: US-PFIZER INC-2008045563

PATIENT
  Sex: Male
  Weight: 90.7 kg

DRUGS (4)
  1. ZYVOX [Suspect]
     Indication: SINUSITIS FUNGAL
     Route: 048
     Dates: start: 20080129, end: 20080201
  2. GLUCOPHAGE [Concomitant]
  3. ACETYLSALICYLIC ACID SRT [Concomitant]
  4. VITAMIN TAB [Concomitant]

REACTIONS (1)
  - GRANULOMA ANNULARE [None]
